FAERS Safety Report 24126046 (Version 1)
Quarter: 2024Q3

REPORT INFORMATION
  Report Type: Spontaneous
  Country: US (occurrence: None)
  Receive Date: 20240721
  Receipt Date: 20240721
  Transmission Date: 20241016
  Serious: Yes (Hospitalization, Disabling, Other)
  Sender: Public
  Company Number: None

PATIENT
  Age: 55 Year
  Sex: Female
  Weight: 93.6 kg

DRUGS (10)
  1. CLOZAPINE [Suspect]
     Active Substance: CLOZAPINE
     Indication: Schizoaffective disorder
     Dates: start: 20040101, end: 20231101
  2. GABAPENTIN [Concomitant]
  3. PALIPERIDONE [Concomitant]
  4. trazadone [Concomitant]
  5. MELATONIN [Concomitant]
  6. Lamotragine [Concomitant]
  7. LOSARTAN [Concomitant]
  8. SYNTHROID [Concomitant]
     Active Substance: LEVOTHYROXINE SODIUM
  9. PRAZOSIN [Concomitant]
  10. TYLENOL [Concomitant]

REACTIONS (2)
  - Megacolon [None]
  - Intestinal obstruction [None]

NARRATIVE: CASE EVENT DATE: 20231002
